FAERS Safety Report 10067477 (Version 1)
Quarter: 2014Q2

REPORT INFORMATION
  Report Type: Spontaneous
  Country: US (occurrence: None)
  Receive Date: 20140408
  Receipt Date: 20140408
  Transmission Date: 20141212
  Serious: Yes (Hospitalization)
  Sender: FDA-Public Use
  Company Number: None

PATIENT
  Age: 77 Year
  Sex: Male

DRUGS (7)
  1. BACTRIM [Suspect]
     Indication: BRONCHITIS
  2. ASA [Concomitant]
  3. ATORVASTATIN [Concomitant]
  4. GLIMEPIRIDE [Concomitant]
  5. LISINOPRIL [Concomitant]
  6. METOPROLOL [Concomitant]
  7. ZANTAC [Concomitant]

REACTIONS (2)
  - Renal failure [None]
  - Hyperkalaemia [None]
